FAERS Safety Report 16286672 (Version 2)
Quarter: 2019Q2

REPORT INFORMATION
  Report Type: Spontaneous
  Country: US (occurrence: US)
  Receive Date: 20190508
  Receipt Date: 20190529
  Transmission Date: 20190711
  Serious: Yes (Hospitalization)
  Sender: FDA-Public Use
  Company Number: US-BEH-2019101927

PATIENT
  Age: 71 Year
  Sex: Male

DRUGS (3)
  1. HIZENTRA [Suspect]
     Active Substance: HUMAN IMMUNOGLOBULIN G
     Dosage: 2 G, QW
     Route: 065
     Dates: start: 201901
  2. HIZENTRA [Suspect]
     Active Substance: HUMAN IMMUNOGLOBULIN G
     Dosage: UNK
     Route: 058
     Dates: start: 20190412
  3. HIZENTRA [Suspect]
     Active Substance: HUMAN IMMUNOGLOBULIN G
     Indication: IMMUNODEFICIENCY COMMON VARIABLE
     Dosage: 10 G, QW
     Route: 065
     Dates: start: 201901

REACTIONS (12)
  - Lymphadenopathy [Unknown]
  - Lymphoproliferative disorder [Unknown]
  - Generalised oedema [Unknown]
  - Sepsis [Unknown]
  - Infusion site cellulitis [Unknown]
  - Ascites [Unknown]
  - Infusion site extravasation [Unknown]
  - Pleural effusion [Unknown]
  - Splenomegaly [Unknown]
  - Infusion site erythema [Unknown]
  - Acute kidney injury [Unknown]
  - Renal failure [Unknown]

NARRATIVE: CASE EVENT DATE: 201904
